FAERS Safety Report 25195963 (Version 1)
Quarter: 2025Q2

REPORT INFORMATION
  Report Type: Spontaneous
  Country: IT (occurrence: IT)
  Receive Date: 20250415
  Receipt Date: 20250415
  Transmission Date: 20250717
  Serious: Yes (Hospitalization, Other)
  Sender: IPCA
  Company Number: IT-IPCA LABORATORIES LIMITED-IPC-2025-IT-000875

PATIENT

DRUGS (1)
  1. ALLOPURINOL [Suspect]
     Active Substance: ALLOPURINOL
     Indication: Product used for unknown indication
     Route: 065

REACTIONS (4)
  - Stevens-Johnson syndrome [Recovered/Resolved]
  - Blood creatine increased [Recovered/Resolved]
  - Renal impairment [Recovered/Resolved]
  - Electrocardiogram QT prolonged [Recovered/Resolved]
